FAERS Safety Report 6865490-3 (Version None)
Quarter: 2010Q3

REPORT INFORMATION
  Report Type: 
  Country: None (occurrence: None)
  Receive Date: 20100721
  Receipt Date: 20080612
  Transmission Date: 20110219
  Serious: No
  Sender: FDA-Public Use
  Company Number: US-PFIZER INC-2008034857

PATIENT
  Sex: Female
  Weight: 59.545 kg

DRUGS (4)
  1. CHANTIX [Suspect]
     Indication: SMOKING CESSATION THERAPY
     Route: 048
     Dates: start: 20080416
  2. SYNTHROID [Concomitant]
     Indication: THYROID DISORDER
  3. PRILOSEC [Concomitant]
     Indication: GASTROOESOPHAGEAL REFLUX DISEASE
  4. DIAZEPAM [Concomitant]

REACTIONS (5)
  - ABNORMAL DREAMS [None]
  - HEADACHE [None]
  - NAUSEA [None]
  - SLEEP DISORDER [None]
  - VOMITING [None]
